FAERS Safety Report 17814579 (Version 3)
Quarter: 2020Q3

REPORT INFORMATION
  Report Type: Report from Study
  Country: CN (occurrence: CN)
  Receive Date: 20200522
  Receipt Date: 20200814
  Transmission Date: 20201102
  Serious: Yes (Hospitalization)
  Sender: FDA-Public Use
  Company Number: CN-ROCHE-2597573

PATIENT
  Age: 55 Year
  Sex: Female
  Weight: 44 kg

DRUGS (32)
  1. RECOMBINANT HUMAN INTERLEUKIN?11 [Concomitant]
     Active Substance: OPRELVEKIN
     Indication: PROPHYLAXIS
     Dates: start: 20131019, end: 20131020
  2. THYMALFASIN [Concomitant]
     Active Substance: THYMALFASIN
     Dates: start: 20131024, end: 20160121
  3. MUCOPOLYSACCHARIDE POLYSULFATE [Concomitant]
     Dates: start: 20131026, end: 2013
  4. DIPHENHYDRAMINE. [Concomitant]
     Active Substance: DIPHENHYDRAMINE
     Dates: start: 20131016, end: 20160121
  5. RECOMBINANT HUMAN GRANULOCYTE COLONY FACTOR (UNK INGREDIENTS) [Concomitant]
     Dates: start: 20131018, end: 20131020
  6. RECOMBINANT HUMAN GRANULOCYTE COLONY FACTOR (UNK INGREDIENTS) [Concomitant]
     Dates: start: 20140201, end: 20140208
  7. ESTAZOLAM. [Concomitant]
     Active Substance: ESTAZOLAM
     Indication: INSOMNIA
     Dates: start: 20170322, end: 201703
  8. DOXORUBICIN [Suspect]
     Active Substance: DOXORUBICIN
     Indication: B-CELL LYMPHOMA
     Dosage: DATE OF MOST RECENT DOSE OF DOXORUBICIN PRIOR TO AE ONSET 17/OCT/2013
     Route: 042
     Dates: start: 20131017
  9. CIMETIDINE [Concomitant]
     Active Substance: CIMETIDINE
     Dates: start: 20131016, end: 20160121
  10. ESOMEPRAZOLE MAGNESIUM. [Concomitant]
     Active Substance: ESOMEPRAZOLE MAGNESIUM
     Dates: start: 20131017, end: 20140127
  11. RECOMBINANT HUMAN GRANULOCYTE COLONY FACTOR (UNK INGREDIENTS) [Concomitant]
     Dates: start: 20131025, end: 20131026
  12. RECOMBINANT HUMAN GRANULOCYTE COLONY FACTOR (UNK INGREDIENTS) [Concomitant]
     Dates: start: 20131129, end: 20131203
  13. ALLOPURINOL. [Concomitant]
     Active Substance: ALLOPURINOL
     Dates: start: 20131015, end: 20131017
  14. OMEPRAZOLE MAGNESIUM. [Concomitant]
     Active Substance: OMEPRAZOLE MAGNESIUM
     Indication: PROPHYLAXIS
     Dosage: ENTERIC COATED TABLETS
     Dates: start: 20150917, end: 20160121
  15. VINCRISTINE [Suspect]
     Active Substance: VINCRISTINE
     Indication: B-CELL LYMPHOMA
     Dosage: DATE OF MOST RECENT DOSE OF VINCRISTINE PRIOR TO AE ONSET 17/OCT/2013
     Route: 042
     Dates: start: 20131017
  16. CELECOXIB. [Concomitant]
     Active Substance: CELECOXIB
     Indication: PYREXIA
     Dates: start: 20131016, end: 20131016
  17. TROPISETRON HYDROCHLORIDE [Concomitant]
     Active Substance: TROPISETRON HYDROCHLORIDE
     Dates: start: 20131017, end: 20140127
  18. DIPHENHYDRAMINE. [Concomitant]
     Active Substance: DIPHENHYDRAMINE
     Indication: HYPOXIA
     Dates: start: 20131016, end: 20131016
  19. RECOMBINANT HUMAN GRANULOCYTE COLONY FACTOR (UNK INGREDIENTS) [Concomitant]
     Dates: start: 20140109, end: 20140117
  20. DIAMMONIUM GLYCYRRHIZINATE [Concomitant]
     Active Substance: HERBALS\DIAMMONIUM GLYCYRRHIZINATE
     Dates: start: 20131023, end: 20131023
  21. CYCLOPHOSPHAMIDE. [Suspect]
     Active Substance: CYCLOPHOSPHAMIDE
     Indication: B-CELL LYMPHOMA
     Dosage: DATE OF MOST RECENT DOSE OF CYCLOPHOSPHAMIDE PRIOR TO AE ONSET 17/OCT/2013
     Route: 042
     Dates: start: 20131017
  22. PREDNISONE. [Suspect]
     Active Substance: PREDNISONE
     Indication: B-CELL LYMPHOMA
     Dosage: DATE OF MOST RECENT DOSE OF PREDNISONE PRIOR TO AE ONSET 21/OCT/2013
     Route: 065
     Dates: start: 20131017
  23. PARACETAMOL [Concomitant]
     Active Substance: ACETAMINOPHEN
     Dates: start: 20131016, end: 20160121
  24. SODIUM BICARBONATE. [Concomitant]
     Active Substance: SODIUM BICARBONATE
     Dates: start: 20131015, end: 20131017
  25. FUROSEMIDUM [Concomitant]
     Active Substance: FUROSEMIDE
     Dates: start: 20131015, end: 20131017
  26. RECOMBINANT HUMAN GRANULOCYTE COLONY FACTOR (UNK INGREDIENTS) [Concomitant]
     Dates: start: 20131101, end: 20131103
  27. RECOMBINANT HUMAN GRANULOCYTE COLONY FACTOR (UNK INGREDIENTS) [Concomitant]
     Dates: start: 20131222, end: 20131228
  28. LIDOCAINE. [Concomitant]
     Active Substance: LIDOCAINE
     Dates: start: 20140310, end: 20140310
  29. RECOMBINANT HUMAN GRANULOCYTE COLONY FACTOR (UNK INGREDIENTS) [Concomitant]
     Dates: start: 20131108, end: 20131113
  30. CIMETIDINE [Concomitant]
     Active Substance: CIMETIDINE
     Indication: HYPOXIA
     Dates: start: 20131016, end: 20131016
  31. OBINUTUZUMAB. [Suspect]
     Active Substance: OBINUTUZUMAB
     Indication: B-CELL LYMPHOMA
     Dosage: 4 MG/ML?DATE OF MOST RECENT DOSE OF OBINUTUZUMAB PRIOR TO EVENT ONSET 23/OCT/2013
     Route: 042
     Dates: start: 20131016
  32. RECOMBINANT HUMAN INTERLEUKIN?11 [Concomitant]
     Active Substance: OPRELVEKIN
     Dates: start: 20131108, end: 20131108

REACTIONS (1)
  - Myelosuppression [Recovered/Resolved]

NARRATIVE: CASE EVENT DATE: 20131025
